APPROVED DRUG PRODUCT: TAXOTERE
Active Ingredient: DOCETAXEL
Strength: 160MG/8ML (20MG/ML)
Dosage Form/Route: INJECTABLE;INJECTION
Application: N020449 | Product #005 | TE Code: AP
Applicant: SANOFI AVENTIS US LLC
Approved: Apr 13, 2012 | RLD: Yes | RS: No | Type: RX